FAERS Safety Report 4766125-6 (Version None)
Quarter: 2005Q3

REPORT INFORMATION
  Report Type: 
  Country: None (occurrence: None)
  Receive Date: 20050912
  Receipt Date: 20050311
  Transmission Date: 20060218
  Serious: Yes (Hospitalization)
  Sender: FDA-Public Use
  Company Number: US-MERCK-0503USA02632

PATIENT
  Age: 74 Year
  Sex: Female
  Weight: 89 kg

DRUGS (10)
  1. VIOXX [Suspect]
     Indication: ARTHRITIS
     Route: 048
     Dates: start: 20040501, end: 20041101
  2. EXELON [Concomitant]
     Route: 048
  3. LOTREL [Concomitant]
     Route: 048
  4. BEXTRA [Concomitant]
     Route: 065
  5. OXYBUTYNIN [Concomitant]
     Route: 048
  6. AGGRENOX [Concomitant]
     Route: 065
  7. NORVASC [Concomitant]
     Route: 065
  8. LISINOPRIL [Concomitant]
     Route: 048
  9. LEXAPRO [Concomitant]
     Route: 065
  10. DETROL [Concomitant]
     Route: 065

REACTIONS (14)
  - ABASIA [None]
  - CEREBRAL INFARCTION [None]
  - CEREBRAL THROMBOSIS [None]
  - CONSTIPATION [None]
  - DEHYDRATION [None]
  - DEPRESSION [None]
  - DYSSTASIA [None]
  - ENCEPHALOMALACIA [None]
  - FALL [None]
  - MUSCLE SPASMS [None]
  - RENAL FAILURE [None]
  - URINARY TRACT INFECTION [None]
  - VAGINAL CANDIDIASIS [None]
  - VENOUS INSUFFICIENCY [None]
